FAERS Safety Report 7618356-5 (Version None)
Quarter: 2011Q3

REPORT INFORMATION
  Report Type: 
  Country: None (occurrence: None)
  Receive Date: 20110718
  Receipt Date: 20110706
  Transmission Date: 20111222
  Serious: Yes (Other)
  Sender: FDA-Public Use
  Company Number: PHHY2011BR60764

PATIENT
  Sex: Male

DRUGS (14)
  1. INDAPEN [Concomitant]
     Dosage: UNK
  2. ENSURE [Concomitant]
     Dosage: UNK
  3. ASPIRIN [Concomitant]
     Dosage: 100 MG, UNK
  4. SIMVASTATIN [Concomitant]
     Dosage: 40 MG, UNK
  5. DONEPEZIL HYDROCHLORIDE [Suspect]
     Indication: DEMENTIA ALZHEIMER'S TYPE
     Dosage: 1 DF, A DAY
     Route: 048
  6. METOPROLOL SUCCINATE [Concomitant]
     Dosage: 50 MG, UNK
  7. EXELON [Suspect]
     Dosage: 27 MG/15CM^2
     Route: 062
     Dates: end: 20110101
  8. MEMANTINE HYDROCHLORIDE [Suspect]
     Indication: DEMENTIA ALZHEIMER'S TYPE
     Dosage: 1 DF, BID
     Route: 048
  9. MULTI-VITAMINS [Concomitant]
     Dosage: UNK
  10. EXELON [Suspect]
     Indication: DEMENTIA ALZHEIMER'S TYPE
     Dosage: 9 MG/5CM^2
     Route: 062
  11. METFORMIN HYDROCHLORIDE [Concomitant]
     Dosage: 500 MG, UNK
  12. EXELON [Suspect]
     Dosage: 18 MG/10CM^2
     Route: 062
     Dates: start: 20100101
  13. FINASTERIDE [Concomitant]
     Dosage: 5 MG, UNK
  14. PENTOXIFYLLINE [Concomitant]
     Indication: CEREBROVASCULAR ACCIDENT
     Dosage: 1 DF, BID
     Route: 048

REACTIONS (7)
  - APPLICATION SITE PRURITUS [None]
  - WRONG TECHNIQUE IN DRUG USAGE PROCESS [None]
  - SPEECH DISORDER [None]
  - APPLICATION SITE DISCOLOURATION [None]
  - GASTRITIS [None]
  - WEIGHT DECREASED [None]
  - DIVERTICULITIS [None]
